FAERS Safety Report 9915719 (Version 1)
Quarter: 2014Q1

REPORT INFORMATION
  Report Type: Spontaneous
  Country: GB (occurrence: None)
  Receive Date: 20140218
  Receipt Date: 20140218
  Transmission Date: 20141002
  Serious: Yes (Disabling, Other)
  Sender: FDA-Public Use
  Company Number: AUR-APL-2014-01653

PATIENT
  Age: 61 Year
  Sex: Female
  Weight: 65.31 kg

DRUGS (1)
  1. SIMVASTATIN [Suspect]
     Indication: ANGIOPLASTY
     Route: 048
     Dates: start: 20120214, end: 20120614

REACTIONS (2)
  - Muscle injury [None]
  - Pain [None]
